FAERS Safety Report 23189308 (Version 1)
Quarter: 2023Q4

REPORT INFORMATION
  Report Type: Spontaneous
  Country: US (occurrence: US)
  Receive Date: 20231116
  Receipt Date: 20231116
  Transmission Date: 20240110
  Serious: No
  Sender: FDA-Public Use
  Company Number: US-CHIESI-2022CHF05560

PATIENT
  Age: 68 Year
  Sex: Male

DRUGS (2)
  1. BETHKIS [Suspect]
     Active Substance: TOBRAMYCIN
     Indication: Bronchiectasis
     Dosage: UNK, BID
     Route: 055
     Dates: start: 20221010
  2. BETHKIS [Suspect]
     Active Substance: TOBRAMYCIN
     Indication: Off label use

REACTIONS (3)
  - Liquid product physical issue [Not Recovered/Not Resolved]
  - Off label use [Unknown]
  - Product use complaint [Unknown]

NARRATIVE: CASE EVENT DATE: 20221010
